FAERS Safety Report 12648045 (Version 4)
Quarter: 2017Q2

REPORT INFORMATION
  Report Type: Spontaneous
  Country: CA (occurrence: CA)
  Receive Date: 20160812
  Receipt Date: 20170505
  Transmission Date: 20170830
  Serious: Yes (Other)
  Sender: FDA-Public Use
  Company Number: CA-GLAXOSMITHKLINE-CA2016GSK116084

PATIENT
  Sex: Male

DRUGS (4)
  1. AVAMYS [Suspect]
     Active Substance: FLUTICASONE FUROATE
     Indication: SINUS DISORDER
     Dosage: UNK
  2. MONTELUKAST SODIUM. [Concomitant]
     Active Substance: MONTELUKAST SODIUM
     Indication: PRODUCT USED FOR UNKNOWN INDICATION
     Dosage: 10 MG, 1D
  3. VALSARTAN. [Concomitant]
     Active Substance: VALSARTAN
     Indication: PRODUCT USED FOR UNKNOWN INDICATION
     Dosage: 160 MG, 1D
  4. SYMBICORT [Concomitant]
     Active Substance: BUDESONIDE\FORMOTEROL FUMARATE DIHYDRATE
     Indication: ASTHMA
     Dosage: 2 PUFF(S), TID

REACTIONS (11)
  - Cardiac pacemaker insertion [Unknown]
  - Gait disturbance [Unknown]
  - Joint injury [Unknown]
  - Blood cholesterol increased [Unknown]
  - Cough [Unknown]
  - Prostate cancer [Unknown]
  - Condition aggravated [Unknown]
  - Knee arthroplasty [Unknown]
  - Musculoskeletal disorder [Unknown]
  - Hypertension [Not Recovered/Not Resolved]
  - Arthropathy [Unknown]
